FAERS Safety Report 23142411 (Version 1)
Quarter: 2023Q4

REPORT INFORMATION
  Report Type: Spontaneous
  Country: US (occurrence: US)
  Receive Date: 20231103
  Receipt Date: 20231103
  Transmission Date: 20240109
  Serious: Yes (Death, Hospitalization, Other)
  Sender: FDA-Public Use
  Company Number: US-STRIDES ARCOLAB LIMITED-2023SP016267

PATIENT
  Age: 7 Decade
  Sex: Female

DRUGS (8)
  1. DEXAMETHASONE [Suspect]
     Active Substance: DEXAMETHASONE
     Indication: Metastases to meninges
     Dosage: 4 MILLIGRAM, EVERY 6 HRS
     Route: 042
  2. METHOTREXATE [Suspect]
     Active Substance: METHOTREXATE
     Indication: Metastases to meninges
     Dosage: 12 MILLIGRAM, CYCLICAL (WEEKLY, INITIATED ON CYCLE 1 DAY 27; THROUGH OMMAYA RESERVOIR)
     Route: 037
  3. METHOTREXATE [Suspect]
     Active Substance: METHOTREXATE
     Dosage: 6 MILLIGRAM, CYCLICAL
     Route: 065
  4. ABEMACICLIB [Suspect]
     Active Substance: ABEMACICLIB
     Indication: Metastases to meninges
     Dosage: 150 MILLIGRAM, CYCLICAL (TWO TIMES PER DAY) (DISCONTINUED ON CYCLE 1 DAY 15 AND LATER RE-INITIATED I
     Route: 048
  5. ABEMACICLIB [Suspect]
     Active Substance: ABEMACICLIB
     Indication: Metastases to lymph nodes
     Dosage: UNK (REINITIATED IN WEEK 10 OF METHOTREXATE THERAPY)
     Route: 065
  6. EXEMESTANE [Suspect]
     Active Substance: EXEMESTANE
     Indication: Invasive ductal breast carcinoma
     Dosage: UNK
     Route: 065
  7. FULVESTRANT [Suspect]
     Active Substance: FULVESTRANT
     Indication: Metastases to lymph nodes
     Dosage: 500 MILLIGRAM, CYCLICAL (PER 28 DAYS) (WITH A LOADING DOSE ON CYCLE 1 DAY 15)
     Route: 030
  8. LETROZOLE [Concomitant]
     Active Substance: LETROZOLE
     Indication: Invasive ductal breast carcinoma
     Dosage: UNK
     Route: 065

REACTIONS (7)
  - Death [Fatal]
  - Pancytopenia [Recovered/Resolved]
  - Drug ineffective [Unknown]
  - Asthenia [Recovered/Resolved]
  - Mouth ulceration [Recovered/Resolved]
  - Malaise [Recovered/Resolved]
  - Off label use [Unknown]
